FAERS Safety Report 6679470-4 (Version None)
Quarter: 2010Q2

REPORT INFORMATION
  Report Type: 
  Country: None (occurrence: None)
  Receive Date: 20100413
  Receipt Date: 20100330
  Transmission Date: 20101027
  Serious: Yes (Hospitalization, Other)
  Sender: FDA-Public Use
  Company Number: PHHY2010TW19701

PATIENT
  Age: 43 Year
  Sex: Male
  Weight: 47 kg

DRUGS (4)
  1. MYCOPHENOLATE MOFETIL [Suspect]
     Indication: IMMUNOSUPPRESSION
     Dosage: 360 MG/DAY
  2. TACROLIMUS [Suspect]
     Indication: IMMUNOSUPPRESSION
     Dosage: 2 MG/DAY
  3. TACROLIMUS [Suspect]
     Dosage: 0.5 MG
  4. METHYLPREDNISOLONE [Suspect]
     Indication: IMMUNOSUPPRESSION
     Dosage: 4 MG/DAY

REACTIONS (14)
  - BLOOD CORTISOL DECREASED [None]
  - BLOOD GLUCOSE DECREASED [None]
  - BLOOD SODIUM DECREASED [None]
  - CRYPTOCOCCOSIS [None]
  - CRYPTOCOCCUS TEST POSITIVE [None]
  - DIZZINESS [None]
  - INTRACRANIAL PRESSURE INCREASED [None]
  - MENINGITIS CRYPTOCOCCAL [None]
  - MUSCULOSKELETAL STIFFNESS [None]
  - NAUSEA [None]
  - PLEOCYTOSIS [None]
  - PROTEIN TOTAL INCREASED [None]
  - PYREXIA [None]
  - VOMITING [None]
